FAERS Safety Report 13537368 (Version 1)
Quarter: 2017Q2

REPORT INFORMATION
  Report Type: Report from Study
  Country: FR (occurrence: FR)
  Receive Date: 20170511
  Receipt Date: 20170511
  Transmission Date: 20170830
  Serious: Yes (Other)
  Sender: FDA-Public Use
  Company Number: FR-ELI_LILLY_AND_COMPANY-FR201705001645

PATIENT

DRUGS (1)
  1. GEMCITABINE HYDROCHLORIDE. [Suspect]
     Active Substance: GEMCITABINE HYDROCHLORIDE
     Indication: THYMOMA
     Dosage: 1000 MG/M2, CYCLICAL
     Route: 042

REACTIONS (3)
  - Ataxia [Recovered/Resolved]
  - Tremor [Recovered/Resolved]
  - Thrombocytopenia [Recovered/Resolved]
